FAERS Safety Report 20231551 (Version 6)
Quarter: 2023Q1

REPORT INFORMATION
  Report Type: Report from Study
  Country: SE (occurrence: SE)
  Receive Date: 20211227
  Receipt Date: 20230310
  Transmission Date: 20230418
  Serious: Yes (Hospitalization)
  Sender: FDA-Public Use
  Company Number: SE-NOVARTISPH-NVSC2021SE296004

PATIENT
  Age: 3 Year
  Sex: Female
  Weight: 14.5 kg

DRUGS (38)
  1. LUTETIUM OXODOTREOTIDE LU-177 [Suspect]
     Active Substance: LUTETIUM OXODOTREOTIDE LU-177
     Indication: Neuroblastoma
     Dosage: 3111 MBQ
     Route: 042
     Dates: start: 20211019
  2. LUTETIUM OXODOTREOTIDE LU-177 [Suspect]
     Active Substance: LUTETIUM OXODOTREOTIDE LU-177
     Dosage: 5721 MBQ
     Route: 042
     Dates: start: 20211109
  3. ESOMEPRAZOLE [Concomitant]
     Active Substance: ESOMEPRAZOLE
     Indication: Product used for unknown indication
     Dosage: UNK
     Route: 065
     Dates: start: 20211220
  4. ESOMEPRAZOLE [Concomitant]
     Active Substance: ESOMEPRAZOLE
     Dosage: UNK
     Route: 065
     Dates: start: 20211221
  5. ESOMEPRAZOLE [Concomitant]
     Active Substance: ESOMEPRAZOLE
     Dosage: UNK
     Route: 065
     Dates: start: 20211222
  6. ESOMEPRAZOLE [Concomitant]
     Active Substance: ESOMEPRAZOLE
     Dosage: UNK
     Route: 065
     Dates: start: 20211223
  7. ESOMEPRAZOLE [Concomitant]
     Active Substance: ESOMEPRAZOLE
     Dosage: UNK
     Route: 065
     Dates: start: 20211224
  8. ESOMEPRAZOLE [Concomitant]
     Active Substance: ESOMEPRAZOLE
     Dosage: UNK
     Route: 065
     Dates: start: 20211225
  9. ESOMEPRAZOLE [Concomitant]
     Active Substance: ESOMEPRAZOLE
     Dosage: UNK
     Route: 065
     Dates: start: 20211226
  10. BACTRIM [Concomitant]
     Active Substance: SULFAMETHOXAZOLE\TRIMETHOPRIM
     Indication: Product used for unknown indication
     Dosage: 5 ML
     Route: 048
     Dates: start: 20211220
  11. BACTRIM [Concomitant]
     Active Substance: SULFAMETHOXAZOLE\TRIMETHOPRIM
     Dosage: 5 ML
     Route: 048
     Dates: start: 20211222
  12. BACTRIM [Concomitant]
     Active Substance: SULFAMETHOXAZOLE\TRIMETHOPRIM
     Dosage: 5 ML
     Route: 048
     Dates: start: 20211224
  13. ZOFRAN [Concomitant]
     Active Substance: ONDANSETRON HYDROCHLORIDE
     Indication: Product used for unknown indication
     Dosage: 55 ML
     Route: 048
     Dates: start: 20211220
  14. ZOFRAN [Concomitant]
     Active Substance: ONDANSETRON HYDROCHLORIDE
     Dosage: 55 ML
     Route: 048
     Dates: start: 20211221
  15. ZOFRAN [Concomitant]
     Active Substance: ONDANSETRON HYDROCHLORIDE
     Dosage: 55 ML
     Route: 048
     Dates: start: 20211222
  16. ZOFRAN [Concomitant]
     Active Substance: ONDANSETRON HYDROCHLORIDE
     Dosage: 55 ML
     Route: 048
     Dates: start: 20211223
  17. ZOFRAN [Concomitant]
     Active Substance: ONDANSETRON HYDROCHLORIDE
     Dosage: 55 ML
     Route: 048
     Dates: start: 20211224
  18. ZOFRAN [Concomitant]
     Active Substance: ONDANSETRON HYDROCHLORIDE
     Dosage: 55 ML
     Route: 048
     Dates: start: 20211225
  19. ZOFRAN [Concomitant]
     Active Substance: ONDANSETRON HYDROCHLORIDE
     Dosage: 55 ML
     Route: 048
     Dates: start: 20211226
  20. GRANISETRON [Concomitant]
     Active Substance: GRANISETRON
     Indication: Product used for unknown indication
     Dosage: 0.5 ML
     Route: 065
     Dates: start: 20211220
  21. POLYETHYLENE GLYCOL 4000 [Concomitant]
     Active Substance: POLYETHYLENE GLYCOL 4000
     Indication: Product used for unknown indication
     Dosage: 1 PACKAGE
     Route: 065
     Dates: start: 20211220
  22. ALTEPLASE [Concomitant]
     Active Substance: ALTEPLASE
     Indication: Product used for unknown indication
     Dosage: 1.5 ML
     Route: 065
     Dates: start: 20211220
  23. DEXTROSE [Concomitant]
     Active Substance: DEXTROSE
     Indication: Product used for unknown indication
     Dosage: 10 ML
     Route: 065
     Dates: start: 20211220
  24. MINIDERM [Concomitant]
     Indication: Product used for unknown indication
     Dosage: UNK
     Route: 065
     Dates: start: 20211220
  25. MINIDERM [Concomitant]
     Dosage: UNK
     Route: 065
     Dates: start: 20211221
  26. MINIDERM [Concomitant]
     Dosage: UNK
     Route: 065
     Dates: start: 20211222
  27. MINIDERM [Concomitant]
     Dosage: UNK
     Route: 065
     Dates: start: 20211223
  28. MINIDERM [Concomitant]
     Dosage: UNK
     Route: 065
     Dates: start: 20211224
  29. MINIDERM [Concomitant]
     Dosage: UNK
     Route: 065
     Dates: start: 20211225
  30. MINIDERM [Concomitant]
     Dosage: UNK
     Route: 065
     Dates: start: 20211226
  31. EMLA [Concomitant]
     Active Substance: LIDOCAINE\PRILOCAINE
     Indication: Product used for unknown indication
     Dosage: UNK
     Route: 065
     Dates: start: 20211220
  32. ACETAMINOPHEN [Concomitant]
     Active Substance: ACETAMINOPHEN
     Indication: Product used for unknown indication
     Dosage: 20 ML
     Route: 065
     Dates: start: 20211220
  33. ACETAMINOPHEN [Concomitant]
     Active Substance: ACETAMINOPHEN
     Dosage: 22 ML
     Route: 065
     Dates: start: 20211222
  34. ACETAMINOPHEN [Concomitant]
     Active Substance: ACETAMINOPHEN
     Indication: Product used for unknown indication
     Dosage: 9 ML
     Route: 065
     Dates: start: 20211220
  35. CLONIDINE [Concomitant]
     Active Substance: CLONIDINE
     Indication: Product used for unknown indication
     Dosage: 1 ML
     Route: 065
     Dates: start: 20211220
  36. CLONIDINE [Concomitant]
     Active Substance: CLONIDINE
     Dosage: 2.5 ML
     Route: 065
     Dates: start: 20211223
  37. CLONIDINE [Concomitant]
     Active Substance: CLONIDINE
     Indication: Product used for unknown indication
     Dosage: 1.5 ML
     Route: 065
     Dates: start: 20211220
  38. SODIUM CHLORIDE [Concomitant]
     Active Substance: SODIUM CHLORIDE
     Indication: Product used for unknown indication
     Dosage: 10 ML
     Route: 065
     Dates: start: 20211220

REACTIONS (1)
  - Haematemesis [Recovered/Resolved]

NARRATIVE: CASE EVENT DATE: 20211221
